FAERS Safety Report 7023781-X (Version None)
Quarter: 2010Q4

REPORT INFORMATION
  Report Type: 
  Country: None (occurrence: None)
  Receive Date: 20101001
  Receipt Date: 20100920
  Transmission Date: 20110411
  Serious: Yes (Hospitalization)
  Sender: FDA-Public Use
  Company Number: ZA-JNJFOC-20100906500

PATIENT
  Age: 67 Year
  Sex: Male
  Weight: 82.5 kg

DRUGS (10)
  1. GOLIMUMAB [Suspect]
     Indication: RHEUMATOID ARTHRITIS
     Route: 058
  2. GOLIMUMAB [Suspect]
     Route: 058
  3. LANTUS [Concomitant]
     Indication: DIABETES MELLITUS
     Route: 058
  4. APIDRA [Concomitant]
     Indication: DIABETES MELLITUS
     Route: 058
  5. METHOTREXATE [Concomitant]
     Indication: RHEUMATOID ARTHRITIS
  6. VASCARD [Concomitant]
     Indication: HYPERTENSION
     Route: 048
  7. CO-APROVEL [Concomitant]
     Indication: HYPERTENSION
  8. XALATAN [Concomitant]
     Indication: GLAUCOMA
     Route: 047
  9. SYNAP FORTE [Concomitant]
     Indication: RHEUMATOID ARTHRITIS
     Route: 048
  10. VOLTAREN [Concomitant]
     Indication: RHEUMATOID ARTHRITIS
     Route: 048

REACTIONS (1)
  - ARTHRITIS BACTERIAL [None]
